FAERS Safety Report 7166705-7 (Version None)
Quarter: 2010Q4

REPORT INFORMATION
  Report Type: 
  Country: None (occurrence: None)
  Receive Date: 20101216
  Receipt Date: 20101207
  Transmission Date: 20110411
  Serious: Yes (Hospitalization)
  Sender: FDA-Public Use
  Company Number: DE-ROCHE-718654

PATIENT
  Sex: Female
  Weight: 55 kg

DRUGS (10)
  1. CAPECITABINE [Suspect]
     Indication: RECTAL CANCER
     Dosage: SCHEDULE: 825 MG.M2 PO BID D1-33 W/O WEEKENDS+ OPTIONAL BOOST. DATE OF LAST DOSE: 23 AUG 2010.
     Route: 048
     Dates: start: 20100726
  2. CAPECITABINE [Suspect]
     Route: 048
  3. OXALIPLATIN [Suspect]
     Indication: RECTAL CANCER
     Dosage: SCHEDULE: 50 MG/M2 IV ON D1, 8, 15, 22 + 29.DATE OF LAST DOSE PRIOR TO SAE: 23 AUGUST 2010.
     Route: 042
     Dates: start: 20100726
  4. OXALIPLATIN [Suspect]
     Route: 042
  5. LOPERAMIDE [Concomitant]
     Route: 048
     Dates: start: 20100722
  6. METOCLOPRAMIDE HYDROCHLORIDE [Concomitant]
     Indication: VOMITING
     Route: 048
     Dates: start: 20100722
  7. KEVATRIL [Concomitant]
     Indication: VOMITING
     Dates: start: 20100729
  8. PANTOZOL [Concomitant]
     Dosage: SCHEDULE: IF NEEDED.
     Route: 048
     Dates: start: 20100729, end: 20100809
  9. IBUPROFEN [Concomitant]
     Indication: PAIN
     Dosage: SCHEDULE: IF NEEDED.
     Route: 048
     Dates: start: 20100729, end: 20100803
  10. CLEXANE [Concomitant]
     Dates: end: 20100809

REACTIONS (6)
  - DIARRHOEA [None]
  - GENERAL PHYSICAL HEALTH DETERIORATION [None]
  - HEPATIC ENZYME INCREASED [None]
  - NAUSEA [None]
  - PYREXIA [None]
  - VOMITING [None]
